FAERS Safety Report 25526428 (Version 1)
Quarter: 2025Q3

REPORT INFORMATION
  Report Type: Spontaneous
  Country: EU (occurrence: EU)
  Receive Date: 20250707
  Receipt Date: 20250707
  Transmission Date: 20251020
  Serious: Yes (Life-Threatening, Hospitalization)
  Sender: MYLAN
  Company Number: None

PATIENT
  Age: 69 Year
  Sex: Male
  Weight: 84 kg

DRUGS (12)
  1. VANCOMYCIN [Suspect]
     Active Substance: VANCOMYCIN
     Indication: Diabetic foot infection
     Dosage: 2 GRAM, QOD
     Dates: start: 20250529, end: 20250605
  2. VANCOMYCIN [Suspect]
     Active Substance: VANCOMYCIN
     Dosage: 2 GRAM, QOD
     Route: 042
     Dates: start: 20250529, end: 20250605
  3. VANCOMYCIN [Suspect]
     Active Substance: VANCOMYCIN
     Dosage: 2 GRAM, QOD
     Route: 042
     Dates: start: 20250529, end: 20250605
  4. VANCOMYCIN [Suspect]
     Active Substance: VANCOMYCIN
     Dosage: 2 GRAM, QOD
     Dates: start: 20250529, end: 20250605
  5. CEFTRIAXONE [Suspect]
     Active Substance: CEFTRIAXONE
     Indication: Diabetic foot infection
     Dosage: 2 GRAM, QOD
     Dates: start: 20250529, end: 20250605
  6. CEFTRIAXONE [Suspect]
     Active Substance: CEFTRIAXONE
     Dosage: 2 GRAM, QOD
     Route: 042
     Dates: start: 20250529, end: 20250605
  7. CEFTRIAXONE [Suspect]
     Active Substance: CEFTRIAXONE
     Dosage: 2 GRAM, QOD
     Route: 042
     Dates: start: 20250529, end: 20250605
  8. CEFTRIAXONE [Suspect]
     Active Substance: CEFTRIAXONE
     Dosage: 2 GRAM, QOD
     Dates: start: 20250529, end: 20250605
  9. METRONIDAZOLE [Suspect]
     Active Substance: METRONIDAZOLE
     Indication: Diabetic foot infection
     Dosage: 2 GRAM, QOD
     Dates: start: 20250529, end: 20250605
  10. METRONIDAZOLE [Suspect]
     Active Substance: METRONIDAZOLE
     Dosage: 2 GRAM, QOD
     Route: 042
     Dates: start: 20250529, end: 20250605
  11. METRONIDAZOLE [Suspect]
     Active Substance: METRONIDAZOLE
     Dosage: 2 GRAM, QOD
     Route: 042
     Dates: start: 20250529, end: 20250605
  12. METRONIDAZOLE [Suspect]
     Active Substance: METRONIDAZOLE
     Dosage: 2 GRAM, QOD
     Dates: start: 20250529, end: 20250605

REACTIONS (3)
  - Thrombocytopenic purpura [Recovering/Resolving]
  - Evans syndrome [Recovering/Resolving]
  - Autoimmune haemolytic anaemia [Not Recovered/Not Resolved]

NARRATIVE: CASE EVENT DATE: 20250603
